FAERS Safety Report 13164092 (Version 3)
Quarter: 2018Q4

REPORT INFORMATION
  Report Type: Other
  Country: CA (occurrence: CA)
  Receive Date: 20170130
  Receipt Date: 20181214
  Transmission Date: 20190204
  Serious: Yes (Life-Threatening, Hospitalization)
  Sender: FDA-Public Use
  Company Number: CA-PURDUE PHARMA-CAN-2017-0007359

PATIENT
  Age: 8 Day
  Sex: Female
  Weight: 2 kg

DRUGS (7)
  1. OXYCODONE HYDROCHLORIDE. [Suspect]
     Active Substance: OXYCODONE HYDROCHLORIDE
     Indication: AFTERBIRTH PAIN
     Dosage: UNK
     Route: 063
  2. ACETAMINOPHEN. [Suspect]
     Active Substance: ACETAMINOPHEN
     Indication: AFTERBIRTH PAIN
     Dosage: UNK
     Route: 063
  3. IBUPROFEN. [Suspect]
     Active Substance: IBUPROFEN
     Indication: AFTERBIRTH PAIN
     Dosage: UNK
     Route: 063
  4. TYLENOL WITH CODEINE [Suspect]
     Active Substance: ACETAMINOPHEN\CODEINE PHOSPHATE
     Indication: COUGH
     Dosage: 1.4 MG/KG, TID
     Route: 063
  5. TYLENOL WITH CODEINE [Suspect]
     Active Substance: ACETAMINOPHEN\CODEINE PHOSPHATE
     Dosage: 2.1 MG/KG, UNK
     Route: 063
  6. TYLENOL WITH CODEINE [Suspect]
     Active Substance: ACETAMINOPHEN\CODEINE PHOSPHATE
     Indication: AFTERBIRTH PAIN
     Dosage: 1.4 MG/KG, TID
     Route: 063
  7. TYLENOL WITH CODEINE [Suspect]
     Active Substance: ACETAMINOPHEN\CODEINE PHOSPHATE
     Dosage: 2.1 MG/KG, UNK
     Route: 063

REACTIONS (3)
  - Exposure via breast milk [Recovering/Resolving]
  - Lethargy [Recovering/Resolving]
  - Respiratory arrest [Recovering/Resolving]
